FAERS Safety Report 22801180 (Version 8)
Quarter: 2023Q4

REPORT INFORMATION
  Report Type: Report from Study
  Country: TW (occurrence: TW)
  Receive Date: 20230809
  Receipt Date: 20231026
  Transmission Date: 20240109
  Serious: Yes (Life-Threatening, Hospitalization)
  Sender: FDA-Public Use
  Company Number: TW-AMGEN-TWNCT2023124483

PATIENT
  Age: 15 Year
  Sex: Male

DRUGS (48)
  1. CARFILZOMIB [Suspect]
     Active Substance: CARFILZOMIB
     Indication: Acute lymphocytic leukaemia
     Dosage: 73 MILLIGRAM
     Route: 042
     Dates: start: 20230620
  2. METHOTREXATE [Suspect]
     Active Substance: METHOTREXATE
     Indication: Product used for unknown indication
     Dosage: 15 MILLIGRAM
     Route: 065
     Dates: start: 20230615, end: 20230711
  3. CEFEPIME HYDROCHLORIDE [Concomitant]
     Active Substance: CEFEPIME HYDROCHLORIDE
     Dosage: 2000 MILLIGRAM
     Route: 042
     Dates: start: 20230614, end: 20230622
  4. COTRIMOXAZOLE [Concomitant]
     Active Substance: SULFAMETHOXAZOLE\TRIMETHOPRIM
     Dosage: 1 UNK
     Route: 048
     Dates: start: 20230614, end: 20230731
  5. GLUCOSE MONOHYDRATE;SODIUM CHLORIDE [Concomitant]
     Dosage: 1920 MILLILITER
     Route: 042
     Dates: start: 20230614, end: 20230615
  6. TETRACYCLINE HYDROCHLORIDE [Concomitant]
     Active Substance: TETRACYCLINE HYDROCHLORIDE
     Dosage: 1 UNK
     Route: 061
     Dates: start: 20230614, end: 20230731
  7. LIDOCAINE HYDROCHLORIDE [Concomitant]
     Active Substance: DEXTROSE MONOHYDRATE\EPINEPHRINE\EPINEPHRINE BITARTRATE\LIDOCAINE\LIDOCAINE HYDROCHLORIDE\LIDOCAINE
     Dosage: 2 MILLILITER
     Dates: start: 20230615, end: 20230615
  8. MICAFUNGIN SODIUM [Concomitant]
     Active Substance: MICAFUNGIN SODIUM
     Dosage: 100 MILLIGRAM
     Route: 042
     Dates: start: 20230615, end: 20230725
  9. NALBUPHINE HYDROCHLORIDE [Concomitant]
     Active Substance: NALBUPHINE HYDROCHLORIDE
     Dosage: 10 MILLIGRAM
     Route: 042
     Dates: start: 20230615, end: 20230615
  10. SENNOSIDES A AND B [Concomitant]
     Active Substance: SENNOSIDES A AND B
     Dosage: 12.5 MILLIGRAM
     Route: 048
     Dates: start: 20230615, end: 20230714
  11. TUBERCULIN PURIFIED PROTEIN DERIVATIVE [Concomitant]
     Active Substance: TUBERCULIN PURIFIED PROTEIN DERIVATIVE
     Dosage: 0.1 MILLILITER
     Route: 023
     Dates: start: 20230615, end: 20230615
  12. COUGH MIXTURE A [Concomitant]
     Dosage: 10 MILLILITER
     Route: 048
     Dates: start: 20230617, end: 20230621
  13. FEXOFENADINE HYDROCHLORIDE [Concomitant]
     Active Substance: FEXOFENADINE HYDROCHLORIDE
     Dosage: 60 MILLIGRAM
     Route: 048
     Dates: start: 20230617, end: 20230618
  14. POTASSIUM GLUCONATE [Concomitant]
     Active Substance: POTASSIUM GLUCONATE
     Dosage: 15 MILLILITER
     Route: 048
     Dates: start: 20230620, end: 20230622
  15. EPIRUBICIN [Concomitant]
     Active Substance: EPIRUBICIN
     Dosage: 94 MILLIGRAM
     Dates: start: 20230621
  16. DIPHENHYDRAMINE HYDROCHLORIDE [Concomitant]
     Active Substance: DIPHENHYDRAMINE HYDROCHLORIDE
     Dosage: 30 MILLIGRAM
     Route: 042
     Dates: start: 20230614, end: 20230731
  17. MAGNESIUM OXIDE [Concomitant]
     Active Substance: MAGNESIUM OXIDE
     Dosage: 250-500 MILLIGRAM
     Route: 048
     Dates: start: 20230614, end: 20230715
  18. CYTARABINE [Concomitant]
     Active Substance: CYTARABINE
     Dosage: 30 MILLIGRAM
     Dates: start: 20230615
  19. CORTISONE [Concomitant]
     Active Substance: CORTISONE
     Dosage: 15 MILLIGRAM
     Route: 029
     Dates: start: 20230615
  20. SODIUM CHLORIDE [Concomitant]
     Active Substance: SODIUM CHLORIDE
     Dosage: 1920-2760 MILLILITER
     Route: 042
     Dates: start: 20230615, end: 20230626
  21. ACETAMINOPHEN [Concomitant]
     Active Substance: ACETAMINOPHEN
     Dosage: 500 MILLIGRAM
     Route: 048
     Dates: start: 20230617, end: 20230731
  22. LINEZOLID [Concomitant]
     Active Substance: LINEZOLID
     Dosage: 400-600 MILLIGRAM
     Route: 042
     Dates: start: 20230617, end: 20230731
  23. POTASSIUM CHLORIDE [Concomitant]
     Active Substance: POTASSIUM CHLORIDE
     Dosage: 20-40 UNK
     Route: 042
     Dates: start: 20230619, end: 20230707
  24. DEXAMETHASONE [Concomitant]
     Active Substance: DEXAMETHASONE
     Dosage: 4 MILLIGRAM
     Dates: start: 20230620
  25. VINCRISTINE [Concomitant]
     Active Substance: VINCRISTINE
     Dosage: 2 MILLIGRAM
     Dates: start: 20230620
  26. ASPARAGINASE [Concomitant]
     Active Substance: ASPARAGINASE
     Dosage: 7800 UNK
     Dates: start: 20230621
  27. AMLODIPINE BESYLATE [Concomitant]
     Active Substance: AMLODIPINE BESYLATE
     Dosage: 5-10 MILLIGRAM
     Route: 048
     Dates: start: 20230622, end: 20230731
  28. DASATINIB [Concomitant]
     Active Substance: DASATINIB
     Dosage: 20 MILLIGRAM
     Route: 048
     Dates: start: 20230511, end: 20230619
  29. DEXTROSE MONOHYDRATE [Concomitant]
     Active Substance: DEXTROSE MONOHYDRATE
     Dosage: 1920 MILLILITER
     Route: 042
     Dates: start: 20230614, end: 20230615
  30. FENTANYL CITRATE [Concomitant]
     Active Substance: FENTANYL CITRATE
     Dosage: 1 UNK  25 MCG/1 HR /PCE
     Route: 062
     Dates: start: 20230701, end: 20230715
  31. MIDAZOLAM [Concomitant]
     Active Substance: MIDAZOLAM
     Dosage: UNK
  32. AMIKACIN SULFATE [Concomitant]
     Active Substance: AMIKACIN SULFATE
     Dosage: 500 MILLIGRAM
     Route: 042
     Dates: start: 20230621, end: 20230622
  33. COROL ORAL RINSE [Concomitant]
     Dosage: 15 MILLILITER
     Route: 050
     Dates: start: 20230623, end: 20230731
  34. ALLOPURINOL [Concomitant]
     Active Substance: ALLOPURINOL
     Dosage: 100 MILLIGRAM
     Route: 048
     Dates: start: 20230625, end: 20230628
  35. BISACODYL [Concomitant]
     Active Substance: BISACODYL
     Dosage: 1 UNK
     Route: 054
     Dates: start: 20230625, end: 20230714
  36. CHLORZOXAZONE [Concomitant]
     Active Substance: CHLORZOXAZONE
     Dosage: 200 MILLIGRAM
     Route: 048
     Dates: start: 20230627, end: 20230715
  37. RIVOTRIL [Concomitant]
     Active Substance: CLONAZEPAM
     Dosage: 0.5 MILLIGRAM
     Route: 048
     Dates: start: 20230629, end: 20230714
  38. GRANISETRON HYDROCHLORIDE [Concomitant]
     Active Substance: GRANISETRON HYDROCHLORIDE
     Dosage: 3 MILLIGRAM
     Route: 042
     Dates: start: 20230615, end: 20230711
  39. FUROSEMIDE [Concomitant]
     Active Substance: FUROSEMIDE
     Dosage: 10-20 MILLIGRAM
     Route: 042
     Dates: start: 20230622, end: 20230719
  40. LIDOCAINE AND PRILOCAINE [Concomitant]
     Active Substance: LIDOCAINE\PRILOCAINE
     Dosage: 1 UNK
     Route: 061
     Dates: start: 20230615, end: 20230711
  41. LEUCOVORIN CALCIUM [Concomitant]
     Active Substance: LEUCOVORIN CALCIUM
     Dosage: 15-20 MILLIGRAM
     Route: 042
     Dates: start: 20230620, end: 20230731
  42. FAMOTIDINE [Concomitant]
     Active Substance: FAMOTIDINE
     Dosage: 20 MILLIGRAM
     Route: 048
     Dates: start: 20230620, end: 20230710
  43. MEROPENEM [Concomitant]
     Active Substance: MEROPENEM
     Dosage: 750 MILLIGRAM
     Route: 042
     Dates: start: 20230622, end: 20230728
  44. IMIPRAMINE HYDROCHLORIDE [Concomitant]
     Active Substance: IMIPRAMINE HYDROCHLORIDE
     Dosage: 10 MILLIGRAM
     Route: 048
     Dates: start: 20230629, end: 20230714
  45. GENTAMICIN SULFATE [Concomitant]
     Active Substance: GENTAMICIN SULFATE
     Dosage: 320 MILLIGRAM
     Route: 042
     Dates: start: 20230707, end: 20230711
  46. FUSIDIC ACID [Concomitant]
     Active Substance: FUSIDIC ACID
     Dosage: 1 UNK
     Route: 061
     Dates: start: 20230710, end: 20230724
  47. TRANEXAMIC ACID [Concomitant]
     Active Substance: TRANEXAMIC ACID
     Dosage: 500 MILLIGRAM
     Route: 042
     Dates: start: 20230620, end: 20230621
  48. UTRAPHEN [Concomitant]
     Dosage: 1 UNK
     Route: 048
     Dates: start: 20230625, end: 20230627

REACTIONS (1)
  - Respiratory disorder [Not Recovered/Not Resolved]

NARRATIVE: CASE EVENT DATE: 20230715
